FAERS Safety Report 8580109-1 (Version None)
Quarter: 2012Q3

REPORT INFORMATION
  Report Type: 
  Country: None (occurrence: None)
  Receive Date: 20120808
  Receipt Date: 20120731
  Transmission Date: 20120928
  Serious: Yes (Other)
  Sender: FDA-Public Use
  Company Number: JP-PFIZER INC-2012181520

PATIENT
  Age: 65 Year
  Sex: Male

DRUGS (9)
  1. OMEPRAZOLE [Concomitant]
     Dosage: UNK
  2. POLARAMINE [Concomitant]
     Dosage: UNK
  3. DEPAS [Concomitant]
     Dosage: UNK
  4. URSO 250 [Concomitant]
     Dosage: UNK
  5. MIGLITOL [Suspect]
     Indication: DIABETES MELLITUS
     Dosage: 50 MG, 3X/DAY
     Route: 048
     Dates: start: 20101101, end: 20110101
  6. ALLOPURINOL [Concomitant]
     Dosage: UNK
  7. AFINITOR [Concomitant]
     Dosage: UNK
  8. TRICOR [Concomitant]
     Dosage: UNK
  9. ZETIA [Concomitant]
     Dosage: UNK

REACTIONS (1)
  - SYNCOPE [None]
